FAERS Safety Report 8141178-6 (Version None)
Quarter: 2012Q1

REPORT INFORMATION
  Report Type: 
  Country: None (occurrence: None)
  Receive Date: 20120213
  Receipt Date: 20120124
  Transmission Date: 20120608
  Serious: Yes (Disabling)
  Sender: FDA-Public Use
  Company Number: 2012BN000022

PATIENT
  Age: 21 Month
  Sex: Female

DRUGS (3)
  1. HEPARIN [Concomitant]
  2. MELPHALAN HYDROCHLORIDE [Suspect]
     Indication: RETINOBLASTOMA UNILATERAL
     Dosage: 5 MG; ;IART
     Route: 013
  3. ASPIRIN [Concomitant]

REACTIONS (7)
  - EYE EXCISION [None]
  - THERAPEUTIC RESPONSE DECREASED [None]
  - EXTRAOCULAR MUSCLE DISORDER [None]
  - RETINAL DETACHMENT [None]
  - EYELID PTOSIS [None]
  - IRIS NEOVASCULARISATION [None]
  - EYELID OEDEMA [None]
